FAERS Safety Report 10535330 (Version 1)
Quarter: 2014Q4

REPORT INFORMATION
  Report Type: Spontaneous
  Country: US (occurrence: US)
  Receive Date: 20141022
  Receipt Date: 20141022
  Transmission Date: 20150529
  Serious: Yes (Other)
  Sender: FDA-Public Use
  Company Number: US-GLAXOSMITHKLINE-US2014GSK009493

PATIENT
  Sex: Male

DRUGS (6)
  1. ADVAIR DISKUS [Suspect]
     Active Substance: FLUTICASONE PROPIONATE\SALMETEROL XINAFOATE
     Indication: CHRONIC OBSTRUCTIVE PULMONARY DISEASE
     Dosage: 1 DF, BID (100/50)
     Route: 055
     Dates: start: 2006
  2. METOPROLOL [Concomitant]
     Active Substance: METOPROLOL
  3. SULFAMETHOXAZOLE-TRIMETHOPRIM (SMZ) [Concomitant]
     Active Substance: SULFAMETHOXAZOLE\TRIMETHOPRIM
  4. LOVASTATIN. [Concomitant]
     Active Substance: LOVASTATIN
  5. ADVAIR DISKUS [Suspect]
     Active Substance: FLUTICASONE PROPIONATE\SALMETEROL XINAFOATE
     Dosage: 1 DF, BID (250/50 UG)
     Route: 055
  6. OFLOXACIN. [Concomitant]
     Active Substance: OFLOXACIN

REACTIONS (6)
  - Macular degeneration [Recovering/Resolving]
  - Drug ineffective [Recovered/Resolved]
  - Cataract operation [Recovered/Resolved]
  - Cataract [Recovering/Resolving]
  - Myocardial infarction [Unknown]
  - Visual impairment [Not Recovered/Not Resolved]

NARRATIVE: CASE EVENT DATE: 2006
